FAERS Safety Report 10715628 (Version 1)
Quarter: 2015Q1

REPORT INFORMATION
  Report Type: Spontaneous
  Country: US (occurrence: None)
  Receive Date: 20150107
  Receipt Date: 20150107
  Transmission Date: 20150721
  Serious: Yes (Hospitalization, Other)
  Sender: FDA-Public Use
  Company Number: 2013AP004956

PATIENT
  Age: 27 Year
  Sex: Male

DRUGS (1)
  1. LITHIUM [Suspect]
     Active Substance: LITHIUM CARBONATE
     Indication: DEPRESSION

REACTIONS (4)
  - Dizziness [None]
  - Bundle branch block right [None]
  - Sinus bradycardia [None]
  - Confusional state [None]
